FAERS Safety Report 7488283-5 (Version None)
Quarter: 2011Q2

REPORT INFORMATION
  Report Type: 
  Country: None (occurrence: None)
  Receive Date: 20110518
  Receipt Date: 20110509
  Transmission Date: 20111010
  Serious: Yes (Other)
  Sender: FDA-Public Use
  Company Number: AU-ASTRAZENECA-2011SE28255

PATIENT
  Age: 36 Year
  Sex: Female

DRUGS (1)
  1. SEROQUEL [Suspect]
     Route: 048

REACTIONS (24)
  - MUSCULOSKELETAL STIFFNESS [None]
  - SPEECH DISORDER [None]
  - MUSCULAR WEAKNESS [None]
  - INSOMNIA [None]
  - DYSPEPSIA [None]
  - SUICIDAL IDEATION [None]
  - AMNESIA [None]
  - MENTAL STATUS CHANGES [None]
  - GAIT DISTURBANCE [None]
  - DYSARTHRIA [None]
  - DYSKINESIA [None]
  - CONFUSIONAL STATE [None]
  - MYALGIA [None]
  - DIZZINESS [None]
  - INFERTILITY FEMALE [None]
  - DISTURBANCE IN ATTENTION [None]
  - DYSPAREUNIA [None]
  - TREMOR [None]
  - UTERINE CYST [None]
  - MENSTRUATION IRREGULAR [None]
  - HEADACHE [None]
  - HYPERHIDROSIS [None]
  - DROOLING [None]
  - OEDEMA PERIPHERAL [None]
